FAERS Safety Report 13994401 (Version 1)
Quarter: 2017Q3

REPORT INFORMATION
  Report Type: Spontaneous
  Country: RU (occurrence: RU)
  Receive Date: 20170920
  Receipt Date: 20170920
  Transmission Date: 20171128
  Serious: Yes (Hospitalization, Other)
  Sender: FDA-Public Use
  Company Number: RU-ASTRAZENECA-2017SE94881

PATIENT
  Age: 65 Year
  Sex: Female
  Weight: 72 kg

DRUGS (8)
  1. FERRUM LEC [Concomitant]
  2. GLIBENCLAMID [Concomitant]
     Active Substance: GLYBURIDE
  3. RENITEK [Concomitant]
  4. DILTIAZEM. [Concomitant]
     Active Substance: DILTIAZEM
  5. SIDNOFARM [Concomitant]
  6. LANTUS [Concomitant]
     Active Substance: INSULIN GLARGINE
  7. BRILINTA [Suspect]
     Active Substance: TICAGRELOR
     Indication: STENT PLACEMENT
     Route: 048
     Dates: start: 20170609
  8. METFORMIN [Concomitant]
     Active Substance: METFORMIN HYDROCHLORIDE

REACTIONS (4)
  - Off label use [Not Recovered/Not Resolved]
  - Product use in unapproved indication [Unknown]
  - Coronary artery stenosis [Unknown]
  - Myocardial infarction [Not Recovered/Not Resolved]

NARRATIVE: CASE EVENT DATE: 20170908
